FAERS Safety Report 19930912 (Version 1)
Quarter: 2021Q4

REPORT INFORMATION
  Report Type: Other
  Country: GB (occurrence: GB)
  Receive Date: 20211007
  Receipt Date: 20211007
  Transmission Date: 20220303
  Serious: Yes (Other)
  Sender: FDA-Public Use
  Company Number: None

PATIENT

DRUGS (3)
  1. MONTELUKAST SODIUM [Suspect]
     Active Substance: MONTELUKAST SODIUM
     Indication: Product used for unknown indication
     Dosage: ONE (UNIT UNKNOWN), HS
     Route: 065
     Dates: start: 20210817
  2. MONTELUKAST [Concomitant]
     Active Substance: MONTELUKAST SODIUM
     Indication: Product used for unknown indication
     Dosage: ONE (UNIT UNKNOWN), HS
     Route: 065
     Dates: start: 20210817
  3. OMEPRAZOLE [Concomitant]
     Active Substance: OMEPRAZOLE
     Indication: Product used for unknown indication
     Dosage: ONE (UNIT UNKNOWN), HS
     Route: 065
     Dates: start: 20210906

REACTIONS (3)
  - Adverse drug reaction [Recovered/Resolved]
  - Painful respiration [Unknown]
  - Heart rate increased [Unknown]
